FAERS Safety Report 6139281-5 (Version None)
Quarter: 2009Q2

REPORT INFORMATION
  Report Type: 
  Country: None (occurrence: None)
  Receive Date: 20090401
  Receipt Date: 20090324
  Transmission Date: 20091009
  Serious: Yes (Other)
  Sender: FDA-Public Use
  Company Number: IN-BRISTOL-MYERS SQUIBB COMPANY-14566186

PATIENT
  Age: 27 Year
  Sex: Female

DRUGS (2)
  1. WARFARIN SODIUM [Suspect]
     Indication: MITRAL VALVE REPLACEMENT
  2. HEPARIN SODIUM [Suspect]

REACTIONS (3)
  - ABDOMINAL PAIN [None]
  - ABORTION INDUCED [None]
  - PREGNANCY [None]
